FAERS Safety Report 20460016 (Version 1)
Quarter: 2022Q1

REPORT INFORMATION
  Report Type: Spontaneous
  Country: FR (occurrence: FR)
  Receive Date: 20220211
  Receipt Date: 20220211
  Transmission Date: 20220423
  Serious: Yes (Hospitalization)
  Sender: FDA-Public Use
  Company Number: None

PATIENT
  Age: 5 Year
  Sex: Male

DRUGS (1)
  1. BUPRENORPHINE [Suspect]
     Active Substance: BUPRENORPHINE
     Route: 048
     Dates: start: 20220110, end: 20220110

REACTIONS (2)
  - Miosis [Recovered/Resolved]
  - Accidental poisoning [Recovered/Resolved]

NARRATIVE: CASE EVENT DATE: 20220110
